FAERS Safety Report 16859210 (Version 2)
Quarter: 2020Q3

REPORT INFORMATION
  Report Type: Spontaneous
  Country: US (occurrence: US)
  Receive Date: 20190926
  Receipt Date: 20200827
  Transmission Date: 20201102
  Serious: Yes (Other)
  Sender: FDA-Public Use
  Company Number: US-GILEAD-2019-0429748

PATIENT
  Age: 52 Year
  Sex: Female
  Weight: 58.96 kg

DRUGS (17)
  1. ALBUTEROL HFA [Concomitant]
     Active Substance: ALBUTEROL SULFATE
  2. CLONIDINE. [Concomitant]
     Active Substance: CLONIDINE
  3. SEROQUEL [Concomitant]
     Active Substance: QUETIAPINE FUMARATE
  4. PERCOCET [OXYCODONE HYDROCHLORIDE;OXYCODONE TEREPHTHALATE;PARACETAMOL] [Concomitant]
     Active Substance: ACETAMINOPHEN\OXYCODONE HYDROCHLORIDE\OXYCODONE TEREPHTHALATE
  5. TYLENOL [Concomitant]
     Active Substance: ACETAMINOPHEN
  6. FLOVENT [Concomitant]
     Active Substance: FLUTICASONE PROPIONATE
  7. COMPLERA [Suspect]
     Active Substance: EMTRICITABINE\RILPIVIRINE HYDROCHLORIDE\TENOFOVIR DISOPROXIL FUMARATE
     Indication: HIV INFECTION
     Dosage: UNK
     Route: 048
     Dates: start: 20120529, end: 20121119
  8. ACYCLOVIR ABBOTT VIAL [Concomitant]
  9. CAMPRAL [Concomitant]
     Active Substance: ACAMPROSATE CALCIUM
  10. DICYCLOMINE CO [Concomitant]
  11. OMEPRAZOLE. [Concomitant]
     Active Substance: OMEPRAZOLE
  12. TRAZODONE [Concomitant]
     Active Substance: TRAZODONE HYDROCHLORIDE
  13. STRIBILD [Suspect]
     Active Substance: COBICISTAT\ELVITEGRAVIR\EMTRICITABINE\TENOFOVIR DISOPROXIL FUMARATE
     Indication: HIV INFECTION
     Dosage: UNK
     Route: 048
     Dates: start: 2012, end: 2018
  14. GABAPENTIN. [Concomitant]
     Active Substance: GABAPENTIN
  15. FOLATE [Concomitant]
     Active Substance: FOLATE SODIUM
  16. OXYCODONE [Concomitant]
     Active Substance: OXYCODONE
  17. BUDEPRION [Concomitant]
     Active Substance: BUPROPION HYDROCHLORIDE

REACTIONS (14)
  - Loss of personal independence in daily activities [Not Recovered/Not Resolved]
  - Osteoporosis [Not Recovered/Not Resolved]
  - Quality of life decreased [Not Recovered/Not Resolved]
  - Anhedonia [Not Recovered/Not Resolved]
  - Decreased activity [Not Recovered/Not Resolved]
  - Economic problem [Not Recovered/Not Resolved]
  - Lower limb fracture [Unknown]
  - Foot fracture [Unknown]
  - Emotional distress [Not Recovered/Not Resolved]
  - Hip fracture [Unknown]
  - Ankle fracture [Unknown]
  - Anxiety [Not Recovered/Not Resolved]
  - Fear-related avoidance of activities [Not Recovered/Not Resolved]
  - Pain [Not Recovered/Not Resolved]

NARRATIVE: CASE EVENT DATE: 20131128
